FAERS Safety Report 6609094-6 (Version None)
Quarter: 2010Q1

REPORT INFORMATION
  Report Type: 
  Country: None (occurrence: None)
  Receive Date: 20100226
  Receipt Date: 20100226
  Transmission Date: 20100710
  Serious: Yes (Hospitalization)
  Sender: FDA-Public Use
  Company Number: None

PATIENT
  Age: 30 Year
  Sex: Male
  Weight: 69.1 kg

DRUGS (2)
  1. PYRAZINAMIDE 2000 MG UNK [Suspect]
     Indication: TUBERCULOSIS
     Dosage: 2000 MG DAILY ORAL 047
     Route: 048
  2. RIFAMPIN 600 MG UNK [Suspect]
     Indication: TUBERCULOSIS
     Dosage: 600 MG DAILY ORAL 047
     Route: 048

REACTIONS (7)
  - ABDOMINAL PAIN [None]
  - COAGULOPATHY [None]
  - JAUNDICE [None]
  - MALAISE [None]
  - MENTAL STATUS CHANGES [None]
  - NAUSEA [None]
  - RASH [None]
